FAERS Safety Report 4487958-X (Version None)
Quarter: 2004Q4

REPORT INFORMATION
  Report Type: 
  Country: None (occurrence: None)
  Receive Date: 20041028
  Receipt Date: 20041014
  Transmission Date: 20050328
  Serious: Yes (Disabling)
  Sender: FDA-Public Use
  Company Number: US-MERCK-0410USA02210

PATIENT
  Age: 52 Year
  Sex: Female

DRUGS (7)
  1. ZETIA [Suspect]
     Indication: HYPERCHOLESTEROLAEMIA
     Route: 048
     Dates: start: 20040101, end: 20041001
  2. SYNTHROID [Concomitant]
     Route: 065
  3. NEURONTIN [Concomitant]
     Route: 065
  4. WELLBUTRIN [Concomitant]
     Route: 065
  5. DIOVAN [Concomitant]
     Route: 065
  6. ZYRTEC [Concomitant]
     Route: 065
  7. METOCLOPRAMIDE [Concomitant]
     Route: 065

REACTIONS (4)
  - BLOOD CREATINE INCREASED [None]
  - HEADACHE [None]
  - MYALGIA [None]
  - NAUSEA [None]
